FAERS Safety Report 19680865 (Version 2)
Quarter: 2022Q3

REPORT INFORMATION
  Report Type: Spontaneous
  Country: GB (occurrence: GB)
  Receive Date: 20210810
  Receipt Date: 20220721
  Transmission Date: 20221027
  Serious: Yes (Hospitalization, Other)
  Sender: FDA-Public Use
  Company Number: GB-MLMSERVICE-20210727-3014345-1

PATIENT

DRUGS (4)
  1. PREDNISOLONE [Suspect]
     Active Substance: PREDNISOLONE
     Indication: Polychondritis
     Dosage: 60 MG, QD
  2. CYCLOSPORINE [Suspect]
     Active Substance: CYCLOSPORINE
     Indication: Polychondritis
     Dosage: CYCLICAL
     Route: 042
  3. CYCLOSPORINE [Suspect]
     Active Substance: CYCLOSPORINE
     Dosage: 6 CYCLICAL
     Route: 042
  4. AZATHIOPRINE [Suspect]
     Active Substance: AZATHIOPRINE
     Indication: Polychondritis
     Dosage: UNK

REACTIONS (9)
  - Hypogammaglobulinaemia [Unknown]
  - Lymphopenia [Unknown]
  - Lower respiratory tract infection [Recovering/Resolving]
  - Steroid diabetes [Unknown]
  - Respiratory failure [Recovering/Resolving]
  - Bacterial disease carrier [Recovering/Resolving]
  - Viral infection [Recovering/Resolving]
  - Pneumocystis jirovecii infection [Recovering/Resolving]
  - Weight increased [Recovering/Resolving]
